FAERS Safety Report 9331372 (Version 7)
Quarter: 2013Q4

REPORT INFORMATION
  Report Type: Spontaneous
  Country: US (occurrence: US)
  Receive Date: 20130605
  Receipt Date: 20131119
  Transmission Date: 20140711
  Serious: Yes (Hospitalization, Other)
  Sender: FDA-Public Use
  Company Number: US-009507513-1306USA000074

PATIENT
  Sex: Female

DRUGS (7)
  1. VICTRELIS [Suspect]
     Indication: CHRONIC HEPATITIS C
     Dosage: DAILY DOSE: 600 MG
     Dates: start: 20130427
  2. VICTRELIS [Suspect]
     Dosage: DAILY DOSE: 600 MG
     Dates: start: 20130916
  3. PEGASYS [Suspect]
     Indication: CHRONIC HEPATITIS C
     Dosage: 180 MICROGRAM, QW
     Dates: start: 20130329, end: 2013
  4. PEGASYS [Suspect]
     Dosage: 135 MICROGRAM, QW
     Dates: start: 2013
  5. REBETOL [Suspect]
     Indication: CHRONIC HEPATITIS C
     Dosage: 600 MG, BID, 200 MG TABLETS 3 TIMES TWICE DAILY
     Route: 048
     Dates: start: 20130329
  6. RISPERDAL [Concomitant]
     Indication: BIPOLAR DISORDER
     Dosage: UNK
  7. CELEXA [Concomitant]
     Indication: DEPRESSION
     Dosage: UNK

REACTIONS (14)
  - Haemoglobin decreased [Not Recovered/Not Resolved]
  - Nausea [Not Recovered/Not Resolved]
  - Yellow skin [Unknown]
  - Nausea [Not Recovered/Not Resolved]
  - Asthenia [Unknown]
  - Pallor [Unknown]
  - White blood cell count decreased [Unknown]
  - Dysarthria [Unknown]
  - Thyroid function test abnormal [Unknown]
  - Fatigue [Unknown]
  - Dyspnoea [Unknown]
  - Speech disorder [Unknown]
  - Hallucination, visual [Unknown]
  - Visual acuity reduced [Unknown]
